FAERS Safety Report 8050359-1 (Version None)
Quarter: 2012Q1

REPORT INFORMATION
  Report Type: 
  Country: None (occurrence: None)
  Receive Date: 20120117
  Receipt Date: 20120113
  Transmission Date: 20120608
  Serious: Yes (Hospitalization)
  Sender: FDA-Public Use
  Company Number: US-ASTRAZENECA-2011SE58792

PATIENT
  Age: 68 Year
  Sex: Female

DRUGS (7)
  1. LEVAQUIN [Concomitant]
  2. ADVAIR DISKUS 100/50 [Concomitant]
  3. TOPROL-XL [Suspect]
     Route: 048
  4. VANCOMYCIN [Concomitant]
  5. CIPROFLOXACIN [Concomitant]
  6. ZOSYN [Concomitant]
  7. SYMBICORT [Suspect]
     Indication: CHRONIC OBSTRUCTIVE PULMONARY DISEASE
     Route: 055

REACTIONS (1)
  - PNEUMONIA [None]
